FAERS Safety Report 16744412 (Version 1)
Quarter: 2019Q3

REPORT INFORMATION
  Report Type: Spontaneous
  Country: GB (occurrence: GB)
  Receive Date: 20190827
  Receipt Date: 20190827
  Transmission Date: 20191005
  Serious: Yes (Other)
  Sender: FDA-Public Use
  Company Number: 2007289

PATIENT
  Age: 78 Year
  Sex: Male

DRUGS (10)
  1. ACIPIMOX [Suspect]
     Active Substance: ACIPIMOX
     Indication: PRODUCT USED FOR UNKNOWN INDICATION
     Dosage: 2/1 DAYS
  2. EZETROL [Suspect]
     Active Substance: EZETIMIBE
     Indication: PRODUCT USED FOR UNKNOWN INDICATION
     Dosage: 1/1 DAYS
  3. FUROSEMIDE. [Suspect]
     Active Substance: FUROSEMIDE
     Indication: PRODUCT USED FOR UNKNOWN INDICATION
     Dosage: 2/1 DAYS
  4. PERINDOPRIL [Suspect]
     Active Substance: PERINDOPRIL
     Indication: PRODUCT USED FOR UNKNOWN INDICATION
     Dosage: 1/1 DAYS
  5. BISOPROLOL [Suspect]
     Active Substance: BISOPROLOL
     Indication: PRODUCT USED FOR UNKNOWN INDICATION
     Dosage: 1/1 DAYS
  6. FUROSEMIDE. [Suspect]
     Active Substance: FUROSEMIDE
     Dosage: 2/1 DAYS
  7. DIGOXIN. [Suspect]
     Active Substance: DIGOXIN
     Indication: PRODUCT USED FOR UNKNOWN INDICATION
     Dosage: 1/1 DAYS
  8. LANSOPRAZOLE. [Suspect]
     Active Substance: LANSOPRAZOLE
     Indication: PRODUCT USED FOR UNKNOWN INDICATION
     Dosage: 1/1 DAYS
  9. ASPIRIN. [Suspect]
     Active Substance: ASPIRIN
     Indication: PRODUCT USED FOR UNKNOWN INDICATION
     Dosage: 1/1 DAYS
  10. AMIODORONE [Suspect]
     Active Substance: AMIODARONE
     Indication: PRODUCT USED FOR UNKNOWN INDICATION
     Dosage: 1/1 DAYS

REACTIONS (2)
  - Atrial fibrillation [Unknown]
  - Dyspnoea [Unknown]
